FAERS Safety Report 6379771-3 (Version None)
Quarter: 2009Q3

REPORT INFORMATION
  Report Type: 
  Country: None (occurrence: None)
  Receive Date: 20090924
  Receipt Date: 20090924
  Transmission Date: 20100115
  Serious: Yes (Other)
  Sender: FDA-Public Use
  Company Number: None

PATIENT
  Age: 33 Year
  Sex: Female
  Weight: 63.5036 kg

DRUGS (2)
  1. OXYCODONE AND ACETAMINOPHEN [Suspect]
     Indication: BACK PAIN
     Dosage: 10 MG 4 TIMES DAY PO
     Route: 048
     Dates: start: 20090203, end: 20090923
  2. OXYCODONE AND ACETAMINOPHEN [Suspect]
     Indication: FIBROMYALGIA
     Dosage: 10 MG 4 TIMES DAY PO
     Route: 048
     Dates: start: 20090203, end: 20090923

REACTIONS (2)
  - DRUG INEFFECTIVE [None]
  - PRODUCT QUALITY ISSUE [None]
